FAERS Safety Report 15236576 (Version 1)
Quarter: 2018Q3

REPORT INFORMATION
  Report Type: Spontaneous
  Country: US (occurrence: US)
  Receive Date: 20180803
  Receipt Date: 20180803
  Transmission Date: 20181010
  Serious: No
  Sender: FDA-Public Use
  Company Number: US-PFIZER INC-2018181122

PATIENT
  Age: 29 Year
  Sex: Male
  Weight: 68.27 kg

DRUGS (2)
  1. EUCRISA [Suspect]
     Active Substance: CRISABOROLE
     Indication: RASH
     Dosage: UNK, TWICE A DAY (APPLY TO THE LIPS TWICE DAILY)
     Route: 061
     Dates: start: 20180328
  2. EUCRISA [Suspect]
     Active Substance: CRISABOROLE
     Indication: ANGULAR CHEILITIS
     Dosage: UNK
     Route: 061

REACTIONS (5)
  - Lip pruritus [Recovered/Resolved]
  - Skin disorder [Unknown]
  - Drug ineffective [Unknown]
  - Cheilitis [Unknown]
  - Product use in unapproved indication [Unknown]
